FAERS Safety Report 15625095 (Version 10)
Quarter: 2020Q3

REPORT INFORMATION
  Report Type: Report from Study
  Country: US (occurrence: US)
  Receive Date: 20181116
  Receipt Date: 20200707
  Transmission Date: 20201102
  Serious: Yes (Death, Life-Threatening, Other)
  Sender: FDA-Public Use
  Company Number: PHHY2018US154871

PATIENT
  Age: 15 Year
  Sex: Female
  Weight: 65 kg

DRUGS (3)
  1. FLUDARABINE [Concomitant]
     Active Substance: FLUDARABINE PHOSPHATE
     Indication: CHEMOTHERAPY
     Dosage: UNK
     Route: 065
  2. KYMRIAH [Suspect]
     Active Substance: TISAGENLECLEUCEL
     Indication: B-CELL TYPE ACUTE LEUKAEMIA
     Dosage: 14 ML, ONCE/SINGLE
     Route: 041
     Dates: start: 20180618
  3. CYCLOPHOSPHAMIDE. [Concomitant]
     Active Substance: CYCLOPHOSPHAMIDE
     Indication: CHEMOTHERAPY
     Route: 065

REACTIONS (22)
  - Acute lymphocytic leukaemia [Unknown]
  - Neurotoxicity [Recovered/Resolved]
  - Depressed level of consciousness [Unknown]
  - Cytopenia [Not Recovered/Not Resolved]
  - Staphylococcal infection [Unknown]
  - Thrombocytopenia [Unknown]
  - Malignant neoplasm progression [Unknown]
  - Haemorrhage intracranial [Fatal]
  - Hallucination [Unknown]
  - Cytokine release syndrome [Recovered/Resolved]
  - Disseminated intravascular coagulation [Unknown]
  - BK virus infection [Unknown]
  - Pyrexia [Recovered/Resolved]
  - Febrile neutropenia [Unknown]
  - Treatment failure [Unknown]
  - Neurotoxicity [Unknown]
  - Pyrexia [Unknown]
  - Hypoxia [Unknown]
  - Hypogammaglobulinaemia [Recovered/Resolved]
  - Transformation to acute myeloid leukaemia [Unknown]
  - Neutropenia [Unknown]
  - Drug ineffective [Unknown]

NARRATIVE: CASE EVENT DATE: 20180618
